FAERS Safety Report 5426906-2 (Version None)
Quarter: 2007Q3

REPORT INFORMATION
  Report Type: 
  Country: None (occurrence: None)
  Receive Date: 20070731
  Receipt Date: 20070502
  Transmission Date: 20080115
  Serious: No
  Sender: FDA-Public Use
  Company Number: US200705000942

PATIENT
  Age: 57 Year
  Sex: Female

DRUGS (6)
  1. BYETTA [Suspect]
     Indication: TYPE 2 DIABETES MELLITUS
     Dosage: 5 UG, 2/D, ; 10 UG, 2/D,  SUBCUTANEOUS
     Route: 058
     Dates: start: 20051001, end: 20070301
  2. BYETTA [Suspect]
     Indication: TYPE 2 DIABETES MELLITUS
     Dosage: 5 UG, 2/D, ; 10 UG, 2/D,  SUBCUTANEOUS
     Route: 058
     Dates: start: 20070301
  3. BYETTA [Suspect]
  4. EXENATIDE PEN [Concomitant]
  5. NPH INSULIN                     (INSULIN INJECTION, ISOPHANE) [Concomitant]
  6. AMARYL [Concomitant]

REACTIONS (3)
  - DIZZINESS [None]
  - INCORRECT DOSE ADMINISTERED [None]
  - NAUSEA [None]
